FAERS Safety Report 8393394-6 (Version None)
Quarter: 2012Q2

REPORT INFORMATION
  Report Type: 
  Country: None (occurrence: None)
  Receive Date: 20120529
  Receipt Date: 20120525
  Transmission Date: 20120825
  Serious: No
  Sender: FDA-Public Use
  Company Number: US-PFIZER INC-2012127299

PATIENT
  Sex: Female
  Weight: 91 kg

DRUGS (11)
  1. BUPROPION [Concomitant]
     Dosage: 150 MG, 1X/DAY
  2. FENOFIBRATE [Concomitant]
     Dosage: 180 MG, 1X/DAY
  3. BUPROPION [Concomitant]
     Dosage: 300 MG, 1X/DAY
  4. CYMBALTA [Concomitant]
     Indication: PAIN
     Dosage: 60 MG, 3X/DAY
     Route: 048
  5. LORTAB [Concomitant]
     Dosage: UNK
  6. SIMVASTATIN [Concomitant]
     Dosage: 40 MG, UNK
  7. TOPIRAMATE [Concomitant]
     Dosage: 75 MG, 2X/DAY
     Route: 048
  8. CYCLOBENZAPRINE [Concomitant]
     Dosage: 10 MG, 1X/DAY
  9. BUSPIRONE [Concomitant]
     Dosage: 5 MG, 3X/DAY
  10. LYRICA [Suspect]
     Indication: NEUROPATHY PERIPHERAL
     Dosage: UNK, 3X/DAY
     Route: 048
     Dates: start: 20060101, end: 20090101
  11. DIAZEPAM [Concomitant]
     Dosage: 2 MG, 3X/DAY

REACTIONS (2)
  - WEIGHT DECREASED [None]
  - TOOTH LOSS [None]
